FAERS Safety Report 14659196 (Version 1)
Quarter: 2018Q1

REPORT INFORMATION
  Report Type: Spontaneous
  Country: FR (occurrence: FR)
  Receive Date: 20180320
  Receipt Date: 20180320
  Transmission Date: 20180509
  Serious: Yes (Hospitalization)
  Sender: FDA-Public Use
  Company Number: FR-PFIZER INC-2018106318

PATIENT
  Age: 75 Year
  Sex: Male
  Weight: 70 kg

DRUGS (13)
  1. TOVIAZ [Suspect]
     Active Substance: FESOTERODINE FUMARATE
     Indication: POLLAKIURIA
     Dosage: 4 MG, 1X/DAY
     Route: 048
     Dates: end: 20171123
  2. PROCARBAZINE [Suspect]
     Active Substance: PROCARBAZINE
     Indication: LYMPHOMA
     Dosage: 200 MG, 1X/DAY
     Route: 048
     Dates: start: 20171121, end: 20171123
  3. SULFARLEM [Concomitant]
     Active Substance: ANETHOLTRITHION
  4. REPAGLINIDE. [Concomitant]
     Active Substance: REPAGLINIDE
  5. INSULATARD /00646002/ [Suspect]
     Active Substance: INSULIN HUMAN
     Indication: DIABETES MELLITUS
     Dosage: 18 IU, 1X/DAY
     Route: 058
     Dates: start: 20171121, end: 20171123
  6. SINEMET [Concomitant]
     Active Substance: CARBIDOPA\LEVODOPA
     Indication: PARKINSON^S DISEASE
  7. INNOHEP [Suspect]
     Active Substance: TINZAPARIN SODIUM
     Indication: THROMBOSIS PROPHYLAXIS
     Dosage: 12000 IU, 1X/DAY
     Route: 058
     Dates: start: 20171122, end: 20171123
  8. VALACICLOVIR [Suspect]
     Active Substance: VALACYCLOVIR HYDROCHLORIDE
     Indication: INFECTION PROPHYLAXIS
     Dosage: 500 MG, 1X/DAY
     Route: 048
     Dates: start: 20171121, end: 20171123
  9. TRIMEBUTINE [Concomitant]
     Active Substance: TRIMEBUTINE
  10. PREDNISONE. [Concomitant]
     Active Substance: PREDNISONE
  11. PARACETAMOL [Concomitant]
     Active Substance: ACETAMINOPHEN
  12. METHOTREXATE MYLAN [Suspect]
     Active Substance: METHOTREXATE SODIUM
     Indication: LYMPHOMA
     Dosage: 6325 MG, SINGLE
     Route: 042
     Dates: start: 20171122, end: 20171122
  13. RANITIDINE. [Concomitant]
     Active Substance: RANITIDINE

REACTIONS (2)
  - Anuria [Recovered/Resolved]
  - Acute kidney injury [Recovering/Resolving]

NARRATIVE: CASE EVENT DATE: 20171123
